FAERS Safety Report 8517652-7 (Version None)
Quarter: 2012Q3

REPORT INFORMATION
  Report Type: 
  Country: None (occurrence: None)
  Receive Date: 20120718
  Receipt Date: 20120705
  Transmission Date: 20120928
  Serious: No
  Sender: FDA-Public Use
  Company Number: US-JNJFOC-20120702942

PATIENT
  Sex: Female
  Weight: 76.2 kg

DRUGS (4)
  1. ATENOLOL [Concomitant]
     Indication: HYPERTENSION
     Route: 048
     Dates: start: 20100101
  2. ALL OTHER THERAPEUTICS [Concomitant]
     Route: 065
  3. REMICADE [Suspect]
     Indication: PSORIASIS
     Route: 042
     Dates: start: 20120401
  4. EYEDROPS FOR GLAUCOMA [Concomitant]
     Indication: GLAUCOMA
     Route: 031
     Dates: start: 20100101

REACTIONS (1)
  - URINARY TRACT INFECTION [None]
